FAERS Safety Report 8149454-8 (Version None)
Quarter: 2012Q1

REPORT INFORMATION
  Report Type: 
  Country: None (occurrence: None)
  Receive Date: 20120218
  Receipt Date: 20111019
  Transmission Date: 20120608
  Serious: No
  Sender: FDA-Public Use
  Company Number: US-ALLERGAN-1113844US

PATIENT
  Age: 53 Year
  Sex: Female
  Weight: 57.596 kg

DRUGS (2)
  1. BOTOX COSMETIC [Suspect]
     Indication: SKIN WRINKLING
     Dosage: 24 UNITS, UNK
     Route: 030
     Dates: start: 20110513
  2. BOTOX COSMETIC [Suspect]

REACTIONS (1)
  - DRUG INEFFECTIVE [None]
